FAERS Safety Report 6315475-0 (Version None)
Quarter: 2009Q3

REPORT INFORMATION
  Report Type: 
  Country: None (occurrence: None)
  Receive Date: 20090819
  Receipt Date: 20090811
  Transmission Date: 20100115
  Serious: Yes (Other)
  Sender: FDA-Public Use
  Company Number: US-PFIZER INC-2009251426

PATIENT
  Sex: Female
  Weight: 95 kg

DRUGS (13)
  1. PROVERA [Suspect]
     Indication: HORMONE REPLACEMENT THERAPY
     Dosage: 2.5 MG, UNK
     Route: 048
     Dates: start: 19960506, end: 19991110
  2. PREMARIN [Suspect]
     Indication: HORMONE REPLACEMENT THERAPY
     Dosage: 0.625 MG, UNK
     Dates: start: 19960506, end: 19991110
  3. PREMPRO [Suspect]
     Indication: HORMONE REPLACEMENT THERAPY
     Dosage: 0.625/2.5MG
     Dates: start: 19961009, end: 20011203
  4. CYCRIN [Suspect]
     Indication: HORMONE REPLACEMENT THERAPY
  5. CURRETAB [Suspect]
     Indication: HORMONE REPLACEMENT THERAPY
  6. ESTROPIPATE [Suspect]
     Indication: HORMONE REPLACEMENT THERAPY
     Dosage: 0.75 MG, UNK
     Dates: start: 19990405, end: 19990715
  7. CLIMARA [Suspect]
     Indication: HORMONE REPLACEMENT THERAPY
     Dosage: 0.05 MG, UNK
     Dates: start: 19990813, end: 19991026
  8. VASOTEC [Concomitant]
     Indication: HYPERTENSION
     Dosage: UNK
     Dates: start: 19990101
  9. DYAZIDE [Concomitant]
     Indication: FLUID IMBALANCE
     Dosage: UNK
     Dates: start: 19980101
  10. MAXZIDE [Concomitant]
     Indication: FLUID IMBALANCE
     Dosage: UNK
     Dates: start: 19960101
  11. BECONASE [Concomitant]
     Indication: HYPERSENSITIVITY
     Dosage: UNK
     Dates: start: 19960101
  12. ALLEGRA [Concomitant]
     Indication: HYPERSENSITIVITY
     Dosage: UNK
     Dates: start: 19990101
  13. FOSAMAX [Concomitant]
     Indication: OSTEOPOROSIS
     Dosage: UNK
     Dates: start: 19981005, end: 20020126

REACTIONS (1)
  - BREAST CANCER FEMALE [None]
